FAERS Safety Report 7505432-0 (Version None)
Quarter: 2011Q2

REPORT INFORMATION
  Report Type: 
  Country: None (occurrence: None)
  Receive Date: 20110526
  Receipt Date: 20110511
  Transmission Date: 20111010
  Serious: Yes (Hospitalization)
  Sender: FDA-Public Use
  Company Number: PHHY2011MX40699

PATIENT
  Sex: Male

DRUGS (1)
  1. EXFORGE [Suspect]
     Indication: HYPERTENSION
     Dosage: 160 MG VALS AND 10 MG AMLO (1 TABLET DAILY)
     Route: 048
     Dates: start: 20101101, end: 20110503

REACTIONS (2)
  - MYOCARDIAL INFARCTION [None]
  - ARTERIAL INJURY [None]
